FAERS Safety Report 24901419 (Version 2)
Quarter: 2025Q1

REPORT INFORMATION
  Report Type: Spontaneous
  Country: US (occurrence: US)
  Receive Date: 20250129
  Receipt Date: 20250130
  Transmission Date: 20250409
  Serious: No
  Sender: JOHNSON AND JOHNSON
  Company Number: US-JNJFOC-20241290052

PATIENT
  Age: 52 Year
  Sex: Female

DRUGS (10)
  1. UPTRAVI [Suspect]
     Active Substance: SELEXIPAG
     Indication: Pulmonary arterial hypertension
     Route: 042
  2. TYVASO DPI [Suspect]
     Active Substance: TREPROSTINIL
     Indication: Pulmonary arterial hypertension
     Route: 055
     Dates: start: 202212
  3. TYVASO DPI [Suspect]
     Active Substance: TREPROSTINIL
     Route: 055
  4. TYVASO DPI [Suspect]
     Active Substance: TREPROSTINIL
     Route: 055
  5. TYVASO DPI [Suspect]
     Active Substance: TREPROSTINIL
     Route: 055
  6. AIMOVIG [Concomitant]
     Active Substance: ERENUMAB-AOOE
  7. AIMOVIG [Concomitant]
     Active Substance: ERENUMAB-AOOE
  8. AIMOVIG [Concomitant]
     Active Substance: ERENUMAB-AOOE
  9. AIMOVIG [Concomitant]
     Active Substance: ERENUMAB-AOOE
  10. XOLAIR [Concomitant]
     Active Substance: OMALIZUMAB

REACTIONS (2)
  - Headache [Unknown]
  - Diarrhoea [Unknown]
